FAERS Safety Report 12632911 (Version 2)
Quarter: 2016Q3

REPORT INFORMATION
  Report Type: Spontaneous
  Country: US (occurrence: US)
  Receive Date: 20160808
  Receipt Date: 20160808
  Transmission Date: 20161109
  Serious: No
  Sender: FDA-Public Use
  Company Number: US-BEH-2015057496

PATIENT
  Sex: Female
  Weight: 51 kg

DRUGS (32)
  1. GABAPENTIN. [Concomitant]
     Active Substance: GABAPENTIN
  2. METHOTREXATE. [Concomitant]
     Active Substance: METHOTREXATE
  3. HIZENTRA [Suspect]
     Active Substance: HUMAN IMMUNOGLOBULIN G
     Indication: HYPOGAMMAGLOBULINAEMIA
     Route: 058
  4. BOTOX [Concomitant]
     Active Substance: ONABOTULINUMTOXINA
  5. TOPAMAX [Concomitant]
     Active Substance: TOPIRAMATE
  6. UROXATRAL [Concomitant]
     Active Substance: ALFUZOSIN HYDROCHLORIDE
  7. VITAMIN D2 [Concomitant]
     Active Substance: ERGOCALCIFEROL
  8. PROMETHAZINE [Concomitant]
     Active Substance: PROMETHAZINE\PROMETHAZINE HYDROCHLORIDE
  9. ACIDOPHILUS [Concomitant]
     Active Substance: LACTOBACILLUS ACIDOPHILUS
  10. FROVA [Concomitant]
     Active Substance: FROVATRIPTAN SUCCINATE
  11. VAGIFEM [Concomitant]
     Active Substance: ESTRADIOL
  12. RESTASIS [Concomitant]
     Active Substance: CYCLOSPORINE
  13. CYMBALTA [Concomitant]
     Active Substance: DULOXETINE HYDROCHLORIDE
  14. RITALIN [Concomitant]
     Active Substance: METHYLPHENIDATE HYDROCHLORIDE
  15. ACETAMINOPHEN. [Concomitant]
     Active Substance: ACETAMINOPHEN
  16. RANITIDINE. [Concomitant]
     Active Substance: RANITIDINE
  17. PANTOPRAZOLE [Concomitant]
     Active Substance: PANTOPRAZOLE SODIUM
  18. POTASSIUM CHLORIDE. [Concomitant]
     Active Substance: POTASSIUM CHLORIDE
  19. EPIPEN [Concomitant]
     Active Substance: EPINEPHRINE
  20. OMEPRAZOLE. [Concomitant]
     Active Substance: OMEPRAZOLE
  21. SYSTANE (HYPROMELLOSE 2910 (4000 MPA.S)) [Concomitant]
     Active Substance: HYPROMELLOSE 2910 (4000 MPA.S)
  22. FOLIC ACID. [Concomitant]
     Active Substance: FOLIC ACID
  23. COLCRYS [Concomitant]
     Active Substance: COLCHICINE
  24. ENBREL [Concomitant]
     Active Substance: ETANERCEPT
  25. NASONEX [Concomitant]
     Active Substance: MOMETASONE FUROATE
  26. FISH OIL [Concomitant]
     Active Substance: FISH OIL
  27. HIZENTRA [Suspect]
     Active Substance: HUMAN IMMUNOGLOBULIN G
     Route: 058
  28. HIZENTRA [Suspect]
     Active Substance: HUMAN IMMUNOGLOBULIN G
  29. LMX [Concomitant]
     Active Substance: LIDOCAINE
  30. DIAZEPAM. [Concomitant]
     Active Substance: DIAZEPAM
  31. MAGNESIUM [Concomitant]
     Active Substance: MAGNESIUM
  32. NORVASC [Concomitant]
     Active Substance: AMLODIPINE BESYLATE

REACTIONS (1)
  - Vertigo [Unknown]
